FAERS Safety Report 25877355 (Version 1)
Quarter: 2025Q4

REPORT INFORMATION
  Report Type: Spontaneous
  Country: GB (occurrence: GB)
  Receive Date: 20251003
  Receipt Date: 20251003
  Transmission Date: 20260118
  Serious: Yes (Other)
  Sender: MYLAN
  Company Number: None

PATIENT
  Sex: Female

DRUGS (4)
  1. CANDESARTAN [Suspect]
     Active Substance: CANDESARTAN
     Indication: Ophthalmic migraine
     Dosage: UNK
     Dates: start: 20250926, end: 20250927
  2. CANDESARTAN [Suspect]
     Active Substance: CANDESARTAN
     Dosage: UNK
     Route: 065
     Dates: start: 20250926, end: 20250927
  3. CANDESARTAN [Suspect]
     Active Substance: CANDESARTAN
     Dosage: UNK
     Route: 065
     Dates: start: 20250926, end: 20250927
  4. CANDESARTAN [Suspect]
     Active Substance: CANDESARTAN
     Dosage: UNK
     Dates: start: 20250926, end: 20250927

REACTIONS (1)
  - Dyspnoea [Recovered/Resolved]

NARRATIVE: CASE EVENT DATE: 20250926
